FAERS Safety Report 4906331-0 (Version None)
Quarter: 2006Q1

REPORT INFORMATION
  Report Type: 
  Country: None (occurrence: None)
  Receive Date: 20060209
  Receipt Date: 20060126
  Transmission Date: 20060701
  Serious: Yes (Life-Threatening, Hospitalization, Disabling)
  Sender: FDA-Public Use
  Company Number: US-JNJFOC-20060200109

PATIENT
  Age: 34 Year
  Sex: Male

DRUGS (1)
  1. CONCERTA [Suspect]
     Indication: SOMNOLENCE
     Route: 048
     Dates: start: 20060123

REACTIONS (1)
  - CEREBROVASCULAR ACCIDENT [None]
